FAERS Safety Report 9154812 (Version 1)
Quarter: 2013Q1

REPORT INFORMATION
  Report Type: Spontaneous
  Country: US (occurrence: None)
  Receive Date: 20130205
  Receipt Date: 20130205
  Transmission Date: 20140127
  Serious: Yes (Other)
  Sender: FDA-Public Use
  Company Number: 2013P1001162

PATIENT
  Age: 22 Year
  Sex: Female
  Weight: 61.24 kg

DRUGS (3)
  1. MYORISAN [Suspect]
     Indication: ACNE
     Dosage: QPM
     Route: 048
     Dates: start: 201211, end: 201212
  2. MYORISAN [Suspect]
     Indication: ACNE
     Dosage: QAM
     Route: 048
     Dates: start: 201211, end: 201212
  3. NORTREL OR NECON [Concomitant]

REACTIONS (8)
  - Painful defaecation [None]
  - Haematochezia [None]
  - Abdominal pain upper [None]
  - Middle insomnia [None]
  - Ovarian cyst ruptured [None]
  - Pregnancy test [None]
  - Chlamydia test [None]
  - Bacterial test [None]
